FAERS Safety Report 5493543-3 (Version None)
Quarter: 2007Q4

REPORT INFORMATION
  Report Type: 
  Country: None (occurrence: None)
  Receive Date: 20071023
  Receipt Date: 20071012
  Transmission Date: 20080405
  Serious: Yes (Other)
  Sender: FDA-Public Use
  Company Number: HQWYE761206DEC04

PATIENT

DRUGS (6)
  1. PREMPRO [Suspect]
     Indication: HORMONE REPLACEMENT THERAPY
     Dosage: UNSPECIFIED
     Route: 048
     Dates: start: 20001201, end: 20010701
  2. PREMPRO [Suspect]
     Dosage: UNSPECIFIED DOSE REGIMEN
     Route: 048
     Dates: start: 20011001, end: 20031001
  3. NORETHINDRONE ACETATE [Suspect]
     Indication: HORMONE REPLACEMENT THERAPY
     Dosage: UNSPECIFIED
     Route: 048
     Dates: start: 19940101, end: 19970101
  4. ESTRATEST [Suspect]
     Indication: HORMONE REPLACEMENT THERAPY
     Dosage: UNSPECIFIED
     Route: 048
     Dates: start: 20010701, end: 20011001
  5. PROVERA [Suspect]
     Indication: HORMONE REPLACEMENT THERAPY
     Dosage: UNSPECIFIED
     Dates: start: 19970101, end: 20001201
  6. PROVERA [Suspect]
     Dosage: UNSPECIFIED
     Route: 048
     Dates: start: 20010701, end: 20011001

REACTIONS (1)
  - BREAST CANCER METASTATIC [None]
